FAERS Safety Report 4846056-3 (Version None)
Quarter: 2005Q4

REPORT INFORMATION
  Report Type: 
  Country: None (occurrence: None)
  Receive Date: 20051130
  Receipt Date: 20051024
  Transmission Date: 20060501
  Serious: Yes (Other)
  Sender: FDA-Public Use
  Company Number: TPA2005A01310

PATIENT
  Age: 61 Year
  Sex: Female
  Weight: 99.9 kg

DRUGS (1)
  1. PIOGLITAZONE HCL [Suspect]
     Indication: GLUCOSE TOLERANCE IMPAIRED
     Dosage: 1 IN 1 D, PER ORAL
     Route: 048
     Dates: start: 20050722, end: 20050915

REACTIONS (4)
  - ANTI-THYROID ANTIBODY POSITIVE [None]
  - DYSPHONIA [None]
  - SWELLING [None]
  - THYROID DISORDER [None]
